FAERS Safety Report 5629676-8 (Version None)
Quarter: 2008Q1

REPORT INFORMATION
  Report Type: 
  Country: None (occurrence: None)
  Receive Date: 20080218
  Receipt Date: 20080212
  Transmission Date: 20080703
  Serious: Yes (Hospitalization)
  Sender: FDA-Public Use
  Company Number: B0507588A

PATIENT
  Age: 71 Year
  Sex: Female

DRUGS (3)
  1. VALACYCLOVIR [Suspect]
     Indication: HERPES ZOSTER
     Route: 048
     Dates: end: 20080103
  2. VELCADE [Suspect]
     Route: 042
  3. DIALYSIS [Concomitant]

REACTIONS (9)
  - ALTERED STATE OF CONSCIOUSNESS [None]
  - APHASIA [None]
  - CONFUSIONAL STATE [None]
  - CSF GLUCOSE DECREASED [None]
  - CSF PROTEIN INCREASED [None]
  - EYE DISORDER [None]
  - MOTOR DYSFUNCTION [None]
  - TOXIC ENCEPHALOPATHY [None]
  - TREMOR [None]
